FAERS Safety Report 9054516 (Version 1)
Quarter: 2013Q1

REPORT INFORMATION
  Report Type: Spontaneous
  Country: US (occurrence: US)
  Receive Date: 20130208
  Receipt Date: 20130208
  Transmission Date: 20140127
  Serious: No
  Sender: FDA-Public Use
  Company Number: US-GLAXOSMITHKLINE-A1003747A

PATIENT
  Age: 25 Year
  Sex: Female

DRUGS (1)
  1. PAXIL [Suspect]
     Indication: GENERALISED ANXIETY DISORDER
     Route: 048
     Dates: start: 20121115

REACTIONS (6)
  - Panic attack [Unknown]
  - Insomnia [Unknown]
  - Decreased appetite [Not Recovered/Not Resolved]
  - Restless legs syndrome [Unknown]
  - Muscle twitching [Unknown]
  - Pain [Recovering/Resolving]
